FAERS Safety Report 13770415 (Version 1)
Quarter: 2017Q3

REPORT INFORMATION
  Report Type: Spontaneous
  Country: US (occurrence: US)
  Receive Date: 20170719
  Receipt Date: 20170719
  Transmission Date: 20171127
  Serious: No
  Sender: FDA-Public Use
  Company Number: None

PATIENT
  Age: 59 Year
  Sex: Female
  Weight: 77.2 kg

DRUGS (4)
  1. PYRIDOXINE [Concomitant]
     Active Substance: PYRIDOXINE
  2. MELOXICAM. [Concomitant]
     Active Substance: MELOXICAM
  3. IBUPROFEN. [Concomitant]
     Active Substance: IBUPROFEN
  4. LEVETIRACETAM. [Suspect]
     Active Substance: LEVETIRACETAM
     Indication: SEIZURE
     Dosage: ?          OTHER DOSE:MG;?
     Route: 048
     Dates: start: 20170429, end: 20170718

REACTIONS (4)
  - Fatigue [None]
  - Amnesia [None]
  - Seizure [None]
  - Headache [None]

NARRATIVE: CASE EVENT DATE: 20170626
